FAERS Safety Report 6811081-X (Version None)
Quarter: 2010Q2

REPORT INFORMATION
  Report Type: 
  Country: None (occurrence: None)
  Receive Date: 20100630
  Receipt Date: 20090415
  Transmission Date: 20101027
  Serious: No
  Sender: FDA-Public Use
  Company Number: US-PFIZER INC-2009176003

PATIENT
  Sex: Female

DRUGS (5)
  1. ESTRING [Suspect]
     Dates: end: 20090201
  2. FIORICET [Concomitant]
     Dosage: UNK
  3. VALIUM [Concomitant]
     Dosage: UNK
  4. VALTREX [Concomitant]
     Dosage: UNK
  5. ASTELIN [Concomitant]
     Dosage: UNK

REACTIONS (1)
  - THERAPEUTIC PRODUCT INEFFECTIVE [None]
